FAERS Safety Report 7064936-8 (Version None)
Quarter: 2010Q4

REPORT INFORMATION
  Report Type: 
  Country: None (occurrence: None)
  Receive Date: 20101027
  Receipt Date: 20101020
  Transmission Date: 20110411
  Serious: Yes (Hospitalization)
  Sender: FDA-Public Use
  Company Number: AT-PFIZER INC-2010133048

PATIENT
  Age: 41 Year
  Sex: Male

DRUGS (9)
  1. SUTENT [Suspect]
     Dosage: UNK
     Dates: start: 20100701, end: 20101017
  2. SORAFENIB [Suspect]
     Dosage: UNK
     Dates: start: 20091218, end: 20100522
  3. SORAFENIB [Suspect]
     Dosage: 400 MG, UNK
     Dates: start: 20100523, end: 20100610
  4. NOVALGIN [Concomitant]
     Dosage: 2000 MG, 1X/DAY
     Dates: start: 20100523
  5. MIRANAX [Concomitant]
     Dosage: 1100 MG, UNK
     Dates: start: 20091101
  6. GABAPENTIN [Concomitant]
     Dosage: 600 MG, UNK
     Dates: start: 20100813
  7. FENTANYL [Concomitant]
     Dosage: 75 UG/H, 1X/DAY
     Dates: start: 20100722
  8. PASPERTIN [Concomitant]
     Dosage: 60 GTT, 1X/DAY
     Dates: start: 20091101
  9. HALDOL [Concomitant]
     Dosage: 11 GTT, 1X/DAY
     Dates: start: 20100523

REACTIONS (1)
  - VERTIGO [None]
